FAERS Safety Report 16049299 (Version 1)
Quarter: 2019Q1

REPORT INFORMATION
  Report Type: Report from Study
  Country: DE (occurrence: DE)
  Receive Date: 20190307
  Receipt Date: 20190307
  Transmission Date: 20190418
  Serious: Yes (Life-Threatening, Hospitalization)
  Sender: FDA-Public Use
  Company Number: DE-PFIZER INC-2019099564

PATIENT
  Age: 78 Year
  Sex: Female
  Weight: 76.5 kg

DRUGS (15)
  1. IRINOTECAN HCL [Suspect]
     Active Substance: IRINOTECAN HYDROCHLORIDE
     Dosage: 110 MG ON DAY 1, DAY 8 AND DAY 22 OF CYCLE
     Route: 042
     Dates: start: 20160318
  2. IRINOTECAN HCL [Suspect]
     Active Substance: IRINOTECAN HYDROCHLORIDE
     Dosage: 140 MG DAY 1, DAY 8 AND DAY 21 OF CYCLE
     Route: 042
     Dates: start: 20150306, end: 20150424
  3. BEVACIZUMAB. [Suspect]
     Active Substance: BEVACIZUMAB
     Dosage: 540 MG, EVERY 3 WEEKS
     Route: 042
     Dates: start: 20150306
  4. BEVACIZUMAB. [Suspect]
     Active Substance: BEVACIZUMAB
     Dosage: 537.5 MG, EVERY 3 WEEKS
     Route: 042
     Dates: start: 20150115
  5. GRANISETRON [Concomitant]
     Active Substance: GRANISETRON
     Indication: NAUSEA
     Dosage: AS REQUIRED
     Route: 048
     Dates: start: 20150515, end: 201506
  6. DYNEXAN (GERMANY) [Concomitant]
     Indication: STOMATITIS
     Dosage: AS REQUIRED
     Route: 048
     Dates: start: 20150424, end: 20150605
  7. BEVACIZUMAB. [Suspect]
     Active Substance: BEVACIZUMAB
     Indication: COLORECTAL CANCER METASTATIC
     Dosage: 500 MG EVERY 3 WEEKS
     Route: 042
     Dates: start: 20160408
  8. GLANDOMED [Concomitant]
     Indication: STOMATITIS
     Route: 048
     Dates: start: 20150424, end: 20150605
  9. IRINOTECAN HCL [Suspect]
     Active Substance: IRINOTECAN HYDROCHLORIDE
     Indication: COLORECTAL CANCER
     Dosage: 280 MG 1X/DAY DURING 14 DAYS FOLLOWED BY 7 DAY BREAK
     Route: 042
     Dates: start: 20150508
  10. CAPECITABINE. [Suspect]
     Active Substance: CAPECITABINE
     Indication: COLORECTAL CANCER
     Dosage: 4000 MG ONCE DAILY 14 DAYS FOLLOWED BY 7 DAY BREAK
     Route: 048
     Dates: start: 20150306, end: 20160422
  11. LOPERAMID [Concomitant]
     Active Substance: LOPERAMIDE
     Indication: DIARRHOEA
     Dosage: AS REQUIRED.
     Route: 048
     Dates: start: 20150306
  12. IRINOTECAN HCL [Suspect]
     Active Substance: IRINOTECAN HYDROCHLORIDE
     Dosage: 240 MG, 1X/DAY
     Route: 042
     Dates: start: 20150515
  13. BEVACIZUMAB. [Suspect]
     Active Substance: BEVACIZUMAB
     Dosage: 537.5 MG, EVERY 3 WEEKS
     Route: 042
     Dates: start: 20151127
  14. L-THYROXIN [Concomitant]
     Active Substance: LEVOTHYROXINE SODIUM
     Indication: HYPOTHYROIDISM
     Route: 048
  15. CANDESARTAN COMP. [Concomitant]
     Indication: HYPERTENSION
     Dosage: 44.5 MG, 1X/DAY
     Route: 048

REACTIONS (4)
  - Subileus [Recovered/Resolved]
  - General physical health deterioration [Recovering/Resolving]
  - Acute kidney injury [Recovering/Resolving]
  - Diarrhoea [Recovered/Resolved]

NARRATIVE: CASE EVENT DATE: 20151130
